FAERS Safety Report 12377036 (Version 1)
Quarter: 2016Q2

REPORT INFORMATION
  Report Type: Report from Study
  Country: US (occurrence: US)
  Receive Date: 20160517
  Receipt Date: 20160517
  Transmission Date: 20160815
  Serious: No
  Sender: FDA-Public Use
  Company Number: US-MALLINCKRODT-T201504365

PATIENT
  Sex: Female

DRUGS (6)
  1. REPOSITORY CORTICOTROPIN INJECTION [Suspect]
     Active Substance: CORTICOTROPIN
     Indication: MULTIPLE SCLEROSIS RELAPSE
     Dosage: 80 UNITS/ML; 80 UNITS ONCE DAILY FOR 5 DAYS
     Route: 030
     Dates: start: 20150301
  2. BENTYL [Concomitant]
     Active Substance: DICYCLOMINE HYDROCHLORIDE
  3. ALEVE [Concomitant]
     Active Substance: NAPROXEN SODIUM
  4. AVONEX [Concomitant]
     Active Substance: INTERFERON BETA-1A
  5. FIORICET [Concomitant]
     Active Substance: ACETAMINOPHEN\BUTALBITAL\CAFFEINE
  6. PROVIGIL [Concomitant]
     Active Substance: MODAFINIL

REACTIONS (2)
  - Pain in extremity [Not Recovered/Not Resolved]
  - Injection site bruising [Recovered/Resolved]
